FAERS Safety Report 12331391 (Version 3)
Quarter: 2021Q1

REPORT INFORMATION
  Report Type: Spontaneous
  Country: US (occurrence: US)
  Receive Date: 20160504
  Receipt Date: 20210212
  Transmission Date: 20210419
  Serious: Yes (Death, Other)
  Sender: FDA-Public Use
  Company Number: US-009507513-1405GBR007457

PATIENT
  Age: 22 Year
  Sex: Male

DRUGS (2)
  1. PROPECIA [Suspect]
     Active Substance: FINASTERIDE
     Indication: ALOPECIA
     Dosage: UNK
     Route: 048
  2. AVODART [Suspect]
     Active Substance: DUTASTERIDE
     Dosage: UNK, FOR 3 MONTHS
     Route: 048

REACTIONS (4)
  - Quality of life decreased [Unknown]
  - Injury [Unknown]
  - Post 5-alpha-reductase inhibitor syndrome [Not Recovered/Not Resolved]
  - Completed suicide [Fatal]

NARRATIVE: CASE EVENT DATE: 2008
